FAERS Safety Report 25119609 (Version 2)
Quarter: 2025Q2

REPORT INFORMATION
  Report Type: Spontaneous
  Country: CY (occurrence: CY)
  Receive Date: 20250325
  Receipt Date: 20250408
  Transmission Date: 20250717
  Serious: Yes (Other)
  Sender: ALNYLAM PHARMACEUTICALS
  Company Number: CY-ALNYLAM PHARMACEUTICALS, INC.-ALN-2025-001922

PATIENT

DRUGS (2)
  1. AMVUTTRA [Suspect]
     Active Substance: VUTRISIRAN
     Indication: Acquired ATTR amyloidosis
     Dosage: 25 MILLIGRAM, Q3M
     Route: 065
     Dates: start: 20241030, end: 20241030
  2. AMVUTTRA [Suspect]
     Active Substance: VUTRISIRAN
     Dosage: 25 MILLIGRAM, Q3M
     Route: 065
     Dates: start: 20250108, end: 20250108

REACTIONS (2)
  - Dermatitis allergic [Recovered/Resolved]
  - Skin reaction [Recovered/Resolved]

NARRATIVE: CASE EVENT DATE: 20250108
